FAERS Safety Report 18508697 (Version 1)
Quarter: 2020Q4

REPORT INFORMATION
  Report Type: Spontaneous
  Country: IN (occurrence: IN)
  Receive Date: 20201117
  Receipt Date: 20201117
  Transmission Date: 20210114
  Serious: Yes (Death, Other)
  Sender: FDA-Public Use
  Company Number: IN-AMGEN-INDSP2020183626

PATIENT
  Age: 17 Year
  Sex: Female

DRUGS (7)
  1. DAUNORUBICIN [Concomitant]
     Active Substance: DAUNORUBICIN
     Dosage: UNK UNK, QD (60 MG/M2 FOR 3 DAYS)
  2. DAUNORUBICIN [Concomitant]
     Active Substance: DAUNORUBICIN
     Dosage: UNK, (45 MILLIGRAM/SQ. METER)
  3. CYTARABINE. [Concomitant]
     Active Substance: CYTARABINE
     Dosage: UNK, QD (100 MG/M2 PER DAY FOR 7 DAYS)
  4. CYTARABINE. [Concomitant]
     Active Substance: CYTARABINE
     Dosage: UNK, (1.5 GRAM PER SQUARE METRE FOR 6 DOSES)
  5. FLUDARABINE [Concomitant]
     Active Substance: FLUDARABINE PHOSPHATE
     Dosage: UNK
  6. MELPHALAN. [Concomitant]
     Active Substance: MELPHALAN
     Dosage: UNK
  7. FILGRASTIM [Suspect]
     Active Substance: FILGRASTIM
     Indication: PROPHYLAXIS
     Dosage: UNK
     Route: 065

REACTIONS (1)
  - Acute myeloid leukaemia refractory [Fatal]
